FAERS Safety Report 6760465-7 (Version None)
Quarter: 2010Q2

REPORT INFORMATION
  Report Type: 
  Country: None (occurrence: None)
  Receive Date: 20100608
  Receipt Date: 20100604
  Transmission Date: 20101027
  Serious: Yes (Life-Threatening)
  Sender: FDA-Public Use
  Company Number: JP-ASTRAZENECA-2010SE25846

PATIENT
  Age: 71 Year
  Sex: Male

DRUGS (5)
  1. CRESTOR [Suspect]
     Indication: HYPERCHOLESTEROLAEMIA
     Route: 048
  2. JANUVIA [Suspect]
     Route: 048
  3. ZOSYN [Concomitant]
     Route: 042
     Dates: start: 20100524
  4. CLARITH [Concomitant]
     Route: 048
     Dates: start: 20100524
  5. AMARYL [Concomitant]
     Route: 048
     Dates: start: 20100601

REACTIONS (1)
  - INTERSTITIAL LUNG DISEASE [None]
